FAERS Safety Report 18799446 (Version 1)
Quarter: 2021Q1

REPORT INFORMATION
  Report Type: Spontaneous
  Country: NG (occurrence: NG)
  Receive Date: 20210128
  Receipt Date: 20210128
  Transmission Date: 20210419
  Serious: Yes (Hospitalization)
  Sender: FDA-Public Use
  Company Number: NG-PFIZER INC-2021056100

PATIENT
  Sex: Female

DRUGS (1)
  1. TYGACIL [Suspect]
     Active Substance: TIGECYCLINE
     Indication: INFECTION
     Dosage: UNK

REACTIONS (4)
  - Chest discomfort [Unknown]
  - Pyrexia [Unknown]
  - Condition aggravated [Unknown]
  - White blood cell count increased [Unknown]
